FAERS Safety Report 21253562 (Version 1)
Quarter: 2022Q3

REPORT INFORMATION
  Report Type: Spontaneous
  Country: US (occurrence: None)
  Receive Date: 20220824
  Receipt Date: 20220824
  Transmission Date: 20221026
  Serious: No
  Sender: FDA-Public Use
  Company Number: None

PATIENT
  Age: 55 Year
  Sex: Male

DRUGS (1)
  1. VICTOZA [Suspect]
     Active Substance: LIRAGLUTIDE
     Indication: Diabetes mellitus
     Dates: start: 20210601, end: 20220731

REACTIONS (3)
  - Pancreatitis [None]
  - Cholelithiasis [None]
  - Therapy cessation [None]

NARRATIVE: CASE EVENT DATE: 20220731
